FAERS Safety Report 6157557-2 (Version None)
Quarter: 2009Q2

REPORT INFORMATION
  Report Type: 
  Country: None (occurrence: None)
  Receive Date: 20090416
  Receipt Date: 20080709
  Transmission Date: 20091009
  Serious: Yes (Other)
  Sender: FDA-Public Use
  Company Number: US-PFIZER INC-2008058529

PATIENT
  Sex: Male
  Weight: 83.9 kg

DRUGS (2)
  1. DILANTIN-125 [Suspect]
     Indication: EPILEPSY
  2. DILANTIN-125 [Suspect]
     Indication: CONVULSION

REACTIONS (1)
  - PARKINSON'S DISEASE [None]
